FAERS Safety Report 8126102-4 (Version None)
Quarter: 2012Q1

REPORT INFORMATION
  Report Type: 
  Country: None (occurrence: None)
  Receive Date: 20120209
  Receipt Date: 20120201
  Transmission Date: 20120608
  Serious: Yes (Hospitalization)
  Sender: FDA-Public Use
  Company Number: PHEH2012US002835

PATIENT
  Sex: Male

DRUGS (7)
  1. SINGULAIR [Suspect]
     Indication: ASTHMA
     Dosage: 5 MG, QD
     Route: 048
  2. FOCALIN XR [Suspect]
     Indication: ATTENTION DEFICIT/HYPERACTIVITY DISORDER
     Dosage: 15 MG, QD
     Route: 048
  3. CETIRIZINE HCL [Suspect]
     Dosage: 5 MG, QD
     Route: 048
  4. QVAR 40 [Suspect]
     Dosage: 80 UG, BID
  5. VERAMYST [Suspect]
     Dosage: 27.5 UG, BID
  6. PROVENTIL [Suspect]
     Indication: WHEEZING
     Dosage: 6.7 G, UNK
  7. ALBUTEROL SULFATE [Suspect]
     Indication: DYSPNOEA
     Dosage: 0.083 %, UNK

REACTIONS (5)
  - MUSCLE SPASMS [None]
  - MALAISE [None]
  - TREMOR [None]
  - LUNG INFECTION [None]
  - DYSPNOEA [None]
